FAERS Safety Report 5138596-7 (Version None)
Quarter: 2006Q4

REPORT INFORMATION
  Report Type: 
  Country: None (occurrence: None)
  Receive Date: 20061024
  Receipt Date: 20061011
  Transmission Date: 20070319
  Serious: Yes (Hospitalization)
  Sender: FDA-Public Use
  Company Number: 2006-02026

PATIENT
  Age: 61 Year
  Sex: Female
  Weight: 99.5 kg

DRUGS (2)
  1. VELCADE [Suspect]
     Indication: ACUTE MYELOID LEUKAEMIA
     Dosage: 0.70 MG/M2, IV BOLUS
     Route: 040
     Dates: start: 20060728, end: 20060728
  2. 17-N (ALLYLAMINO-17-DEMETHOXYGELDANAMYCIN [Suspect]
     Indication: ACUTE MYELOID LEUKAEMIA
     Dosage: 200.00 MG/M2, INTRAVENOUS
     Route: 042
     Dates: start: 20060725, end: 20060728

REACTIONS (7)
  - ALANINE AMINOTRANSFERASE INCREASED [None]
  - ASPARTATE AMINOTRANSFERASE INCREASED [None]
  - BLOOD BILIRUBIN INCREASED [None]
  - BLOOD CREATININE INCREASED [None]
  - HYPOTENSION [None]
  - NEUTROPENIA [None]
  - SERRATIA INFECTION [None]
